FAERS Safety Report 15719873 (Version 4)
Quarter: 2019Q1

REPORT INFORMATION
  Report Type: Spontaneous
  Country: SK (occurrence: SK)
  Receive Date: 20181213
  Receipt Date: 20190118
  Transmission Date: 20190417
  Serious: Yes (Other)
  Sender: FDA-Public Use
  Company Number: SK-PFIZER INC-2018443562

PATIENT
  Sex: Female

DRUGS (7)
  1. IFOSFAMIDE. [Suspect]
     Active Substance: IFOSFAMIDE
     Indication: PLASMA CELL MYELOMA
     Dosage: 1 CYCLIC CODOX/IVAC REGIMEN
  2. CYTARABINE. [Suspect]
     Active Substance: CYTARABINE
     Indication: PLASMA CELL MYELOMA
     Dosage: 1 CYCLIC CODOX/IVAC REGIMEN
     Dates: start: 2010
  3. METHOTREXATE. [Suspect]
     Active Substance: METHOTREXATE
     Indication: PLASMA CELL MYELOMA
     Dosage: UNK, CYCLIC
  4. CYCLOPHOSPHAMIDE. [Suspect]
     Active Substance: CYCLOPHOSPHAMIDE
     Indication: PLASMA CELL MYELOMA
     Dosage: 1 CYCLIC CODOX/IVAC REGIMEN
  5. ETOPOSIDE. [Suspect]
     Active Substance: ETOPOSIDE
     Indication: PLASMA CELL MYELOMA
     Dosage: 1 CYCLIC CODOX/IVAC REGIMEN
  6. VINCRISTINE [Suspect]
     Active Substance: VINCRISTINE
     Indication: PLASMA CELL MYELOMA
     Dosage: 1 CYCLIC CODOX/IVAC REGIMEN
  7. DOXORUBICIN [Suspect]
     Active Substance: DOXORUBICIN
     Indication: PLASMA CELL MYELOMA
     Dosage: 1 CYCLIC CODOX/IVAC REGIMEN

REACTIONS (3)
  - Drug ineffective [Unknown]
  - Herpes zoster [Recovered/Resolved]
  - Type 2 diabetes mellitus [Unknown]

NARRATIVE: CASE EVENT DATE: 2010
